FAERS Safety Report 15756686 (Version 1)
Quarter: 2018Q4

REPORT INFORMATION
  Report Type: Spontaneous
  Country: IT (occurrence: IT)
  Receive Date: 20181224
  Receipt Date: 20181224
  Transmission Date: 20190205
  Serious: Yes (Hospitalization)
  Sender: FDA-Public Use
  Company Number: IT-NOVOPROD-638841

PATIENT
  Age: 12 Year
  Sex: Female
  Weight: 37 kg

DRUGS (2)
  1. NORDITROPIN [Suspect]
     Active Substance: SOMATROPIN
     Indication: SMALL FOR DATES BABY
     Dosage: 1 MG, QD
     Route: 058
     Dates: start: 20160404
  2. SERETIDE [Concomitant]
     Active Substance: FLUTICASONE PROPIONATE\SALMETEROL XINAFOATE
     Indication: ASTHMA
     Dosage: 1 DF
     Route: 065

REACTIONS (1)
  - Cyst [Recovered/Resolved with Sequelae]

NARRATIVE: CASE EVENT DATE: 20181116
